FAERS Safety Report 25542876 (Version 2)
Quarter: 2025Q3

REPORT INFORMATION
  Report Type: Report from Study
  Country: US (occurrence: US)
  Receive Date: 20250711
  Receipt Date: 20250717
  Transmission Date: 20251020
  Serious: Yes (Other)
  Sender: ABBVIE
  Company Number: US-ABBVIE-6205607

PATIENT
  Age: 67 Year
  Sex: Male

DRUGS (3)
  1. IMBRUVICA [Suspect]
     Active Substance: IBRUTINIB
     Indication: Mantle cell lymphoma
     Dosage: MISSED 5 DAYS?DRUG END DATE-2025
     Route: 048
     Dates: start: 202501
  2. IMBRUVICA [Suspect]
     Active Substance: IBRUTINIB
     Indication: Mantle cell lymphoma
     Dosage: DRUG START DATE--2025
     Route: 048
  3. IMBRUVICA [Suspect]
     Active Substance: IBRUTINIB
     Indication: Mantle cell lymphoma
     Route: 048
     Dates: start: 202506

REACTIONS (16)
  - Neuroendocrine tumour [Unknown]
  - Skin reaction [Unknown]
  - Pain in extremity [Unknown]
  - Dermatitis [Recovering/Resolving]
  - Skin erosion [Unknown]
  - Pain of skin [Unknown]
  - Skin haemorrhage [Unknown]
  - Gingival bleeding [Unknown]
  - Noninfective gingivitis [Unknown]
  - Erythema [Recovering/Resolving]
  - Skin swelling [Recovering/Resolving]
  - Pain [Unknown]
  - Depressed mood [Unknown]
  - Off label use [Unknown]
  - Localised infection [Recovering/Resolving]
  - Energy increased [Unknown]

NARRATIVE: CASE EVENT DATE: 20250101
